FAERS Safety Report 6889661-5 (Version None)
Quarter: 2010Q3

REPORT INFORMATION
  Report Type: 
  Country: None (occurrence: None)
  Receive Date: 20100730
  Receipt Date: 20080331
  Transmission Date: 20110219
  Serious: No
  Sender: FDA-Public Use
  Company Number: US-PFIZER INC-2008028705

PATIENT
  Sex: Male
  Weight: 79.545 kg

DRUGS (1)
  1. LIPITOR [Suspect]
     Indication: BLOOD CHOLESTEROL INCREASED
     Dates: end: 20080101

REACTIONS (6)
  - APATHY [None]
  - ARTHRALGIA [None]
  - DISTURBANCE IN ATTENTION [None]
  - HEADACHE [None]
  - MOOD ALTERED [None]
  - PERSONALITY CHANGE [None]
